FAERS Safety Report 6341489-0 (Version None)
Quarter: 2009Q3

REPORT INFORMATION
  Report Type: 
  Country: None (occurrence: None)
  Receive Date: 20090904
  Receipt Date: 20090826
  Transmission Date: 20100115
  Serious: Yes (Life-Threatening, Hospitalization)
  Sender: FDA-Public Use
  Company Number: MX-GENENTECH-289542

PATIENT
  Age: 11 Year
  Sex: Female

DRUGS (1)
  1. XOLAIR [Suspect]
     Indication: DERMATITIS ATOPIC
     Dosage: 300 MG, Q2W
     Route: 042
     Dates: start: 20090301, end: 20090801

REACTIONS (1)
  - ANAPHYLACTIC SHOCK [None]
